FAERS Safety Report 11653164 (Version 1)
Quarter: 2015Q4

REPORT INFORMATION
  Report Type: Spontaneous
  Country: US (occurrence: None)
  Receive Date: 20151022
  Receipt Date: 20151022
  Transmission Date: 20160304
  Serious: No
  Sender: FDA-Public Use
  Company Number: None

PATIENT
  Age: 24 Year
  Sex: Female
  Weight: 84.82 kg

DRUGS (3)
  1. NEXPLANON [Suspect]
     Active Substance: ETONOGESTREL
     Indication: CONTRACEPTION
     Dates: start: 20121121, end: 20151020
  2. ATIVAN [Concomitant]
     Active Substance: LORAZEPAM
  3. LEXAPRO [Concomitant]
     Active Substance: ESCITALOPRAM OXALATE

REACTIONS (6)
  - Major depression [None]
  - Menorrhagia [None]
  - Migraine [None]
  - Headache [None]
  - Insomnia [None]
  - Generalised anxiety disorder [None]

NARRATIVE: CASE EVENT DATE: 20121221
